FAERS Safety Report 20448938 (Version 13)
Quarter: 2023Q1

REPORT INFORMATION
  Report Type: Report from Study
  Country: JP (occurrence: JP)
  Receive Date: 20220209
  Receipt Date: 20230315
  Transmission Date: 20230418
  Serious: Yes (Death, Hospitalization, Other)
  Sender: FDA-Public Use
  Company Number: JP-PFIZER INC-2019492536

PATIENT
  Age: 3 Year
  Sex: Male
  Weight: 17.4 kg

DRUGS (148)
  1. BESPONSA [Suspect]
     Active Substance: INOTUZUMAB OZOGAMICIN
     Indication: Acute lymphocytic leukaemia recurrent
     Dosage: 0.8 MG/M2, 1X/DAY, CYCLE 1
     Route: 041
     Dates: start: 20191112, end: 20191112
  2. BESPONSA [Suspect]
     Active Substance: INOTUZUMAB OZOGAMICIN
     Dosage: 0.5 MG/M2, 1X/DAY, CYCLE 1
     Route: 041
     Dates: start: 20191119, end: 20191119
  3. BESPONSA [Suspect]
     Active Substance: INOTUZUMAB OZOGAMICIN
     Dosage: 0.5 MG/M2, 1X/DAY, CYCLE 1
     Route: 041
     Dates: start: 20191126, end: 20191126
  4. BESPONSA [Suspect]
     Active Substance: INOTUZUMAB OZOGAMICIN
     Dosage: 0.5 MG/M2, 1X/DAY
     Route: 041
     Dates: start: 20200226, end: 20200226
  5. URSO [Concomitant]
     Active Substance: URSODIOL
     Indication: Graft versus host disease in gastrointestinal tract
     Dosage: UNK
     Route: 048
     Dates: start: 20191111
  6. URSO [Concomitant]
     Active Substance: URSODIOL
     Dosage: 160 MG, DAILY (DIVIDED BY 3 TIMES: AFTER BREAKFAST/ LUNCH/ DINNER)
     Dates: start: 20200217, end: 20200302
  7. MAGNESIUM OXIDE [Concomitant]
     Active Substance: MAGNESIUM OXIDE
     Indication: Graft versus host disease in gastrointestinal tract
     Dosage: UNK
     Route: 048
     Dates: start: 20191118, end: 20191215
  8. SULFAMETHOXAZOLE\TRIMETHOPRIM [Concomitant]
     Active Substance: SULFAMETHOXAZOLE\TRIMETHOPRIM
     Indication: Infection prophylaxis
     Dosage: UNK
     Route: 048
     Dates: start: 20170714
  9. SULFAMETHOXAZOLE\TRIMETHOPRIM [Concomitant]
     Active Substance: SULFAMETHOXAZOLE\TRIMETHOPRIM
     Dosage: 0.3 MG, 2X/DAY (AFTER BREAJFAST/DINNER)
     Dates: start: 20200220, end: 20200222
  10. SULFAMETHOXAZOLE\TRIMETHOPRIM [Concomitant]
     Active Substance: SULFAMETHOXAZOLE\TRIMETHOPRIM
     Dosage: 0.3 MG, 2X/DAY (AFTER BREAJFAST/DINNER)
     Dates: start: 20200227, end: 20200301
  11. DECADRON [Concomitant]
     Active Substance: DEXAMETHASONE
     Indication: Infection prophylaxis
     Dosage: UNK
     Route: 048
     Dates: start: 20191112, end: 20191129
  12. ACYCLOVIR [Concomitant]
     Active Substance: ACYCLOVIR
     Indication: Infection prophylaxis
     Dosage: UNK
     Route: 048
     Dates: start: 20191121, end: 20191127
  13. FRAGMIN [Concomitant]
     Active Substance: DALTEPARIN SODIUM
     Indication: Graft versus host disease in gastrointestinal tract
     Dosage: UNK
     Route: 042
     Dates: start: 20191111
  14. FRAGMIN [Concomitant]
     Active Substance: DALTEPARIN SODIUM
     Dosage: 1.2 ML, DAILY
     Route: 042
     Dates: start: 20200217, end: 20200220
  15. FRAGMIN [Concomitant]
     Active Substance: DALTEPARIN SODIUM
     Dosage: 1.2 ML, DAILY
     Route: 042
     Dates: start: 20200226, end: 20200226
  16. FUNGARD [Concomitant]
     Indication: Infection prophylaxis
     Dosage: UNK
     Route: 042
     Dates: start: 20191113, end: 20191216
  17. FUNGARD [Concomitant]
     Dosage: 100 MG, DAILY
     Dates: start: 20200217, end: 20200220
  18. FUNGARD [Concomitant]
     Dosage: 50 MG, DAILY
     Dates: start: 20200221, end: 20200302
  19. GRANISETRON HYDROCHLORIDE [Concomitant]
     Active Substance: GRANISETRON HYDROCHLORIDE
     Indication: Prophylaxis
     Dosage: UNK
     Route: 042
     Dates: start: 20191111, end: 20191126
  20. GRANISETRON HYDROCHLORIDE [Concomitant]
     Active Substance: GRANISETRON HYDROCHLORIDE
     Dosage: 4 MG, DAILY
     Route: 042
     Dates: start: 20200217, end: 20200217
  21. GRANISETRON HYDROCHLORIDE [Concomitant]
     Active Substance: GRANISETRON HYDROCHLORIDE
     Dosage: 4 MG, DAILY
     Route: 042
     Dates: start: 20200223, end: 20200226
  22. ONDANSETRON HYDROCHLORIDE [Concomitant]
     Active Substance: ONDANSETRON HYDROCHLORIDE
     Indication: Prophylaxis
     Dosage: UNK
     Dates: start: 20191126, end: 20191126
  23. SOLU-CORTEF [Concomitant]
     Active Substance: HYDROCORTISONE SODIUM SUCCINATE
     Indication: Prophylaxis
     Dosage: UNK
     Route: 042
     Dates: start: 20191112, end: 20191126
  24. ACETAMINOPHEN [Concomitant]
     Active Substance: ACETAMINOPHEN
     Indication: Prophylaxis
     Dosage: UNK
     Route: 042
     Dates: start: 20191126, end: 20191126
  25. ACETAMINOPHEN [Concomitant]
     Active Substance: ACETAMINOPHEN
     Dosage: 250 MG, DAILY
     Route: 042
     Dates: start: 20200225, end: 20200228
  26. ACETAMINOPHEN [Concomitant]
     Active Substance: ACETAMINOPHEN
     Dosage: 500 MG, DAILY
     Route: 042
     Dates: start: 202002, end: 20200301
  27. ACETAMINOPHEN [Concomitant]
     Active Substance: ACETAMINOPHEN
     Dosage: 250 MG, DAILY
     Dates: start: 20200302, end: 20200302
  28. HYDROXYZINE PAMOATE [Concomitant]
     Active Substance: HYDROXYZINE PAMOATE
     Indication: Prophylaxis
     Dosage: UNK
     Route: 042
     Dates: start: 20191126, end: 20191126
  29. HYDROXYZINE PAMOATE [Concomitant]
     Active Substance: HYDROXYZINE PAMOATE
     Dosage: 15 MG, DAILY
     Dates: start: 20200226, end: 20200302
  30. SODIUM PICOSULFATE [Concomitant]
     Active Substance: SODIUM PICOSULFATE
     Dosage: UNK
     Route: 048
     Dates: start: 20191111
  31. DEXAMETHASONE SODIUM PHOSPHATE [Concomitant]
     Active Substance: DEXAMETHASONE SODIUM PHOSPHATE
     Dosage: UNK
     Dates: start: 20191107
  32. LEUCOVORIN [Concomitant]
     Active Substance: LEUCOVORIN
     Dosage: UNK
     Dates: start: 20191112
  33. NIFEDIPINE [Concomitant]
     Active Substance: NIFEDIPINE
     Dosage: 18 MG, DAILY
     Route: 048
     Dates: start: 20200217, end: 20200218
  34. NIFEDIPINE [Concomitant]
     Active Substance: NIFEDIPINE
     Dosage: 54 MG, DAILY
     Route: 048
     Dates: start: 20200219, end: 20200221
  35. NIFEDIPINE [Concomitant]
     Active Substance: NIFEDIPINE
     Dosage: 131 MG, DAILY
     Route: 048
     Dates: start: 20200222, end: 20200222
  36. NIFEDIPINE [Concomitant]
     Active Substance: NIFEDIPINE
     Dosage: 122 MG, DAILY
     Route: 048
     Dates: start: 20200223, end: 20200224
  37. NIFEDIPINE [Concomitant]
     Active Substance: NIFEDIPINE
     Dosage: 30 MG, DAILY
     Route: 048
     Dates: start: 20200225, end: 20200225
  38. NIFEDIPINE [Concomitant]
     Active Substance: NIFEDIPINE
     Dosage: 50 MG, DAILY
     Route: 048
     Dates: start: 20200226, end: 20200302
  39. ALLOPURINOL [Concomitant]
     Active Substance: ALLOPURINOL
     Dosage: 1.7 DF, DAILY
     Route: 048
     Dates: start: 20200217, end: 20200226
  40. PHENOBARBITAL SODIUM [Concomitant]
     Active Substance: PHENOBARBITAL SODIUM
     Dosage: 90 MG, DAILY
     Route: 048
     Dates: start: 20200217, end: 20200223
  41. WAKOBITAL [Concomitant]
     Dosage: 1 DF, DAILY
     Dates: end: 20200226
  42. NIFEDIPINE [Concomitant]
     Active Substance: NIFEDIPINE
     Dosage: 12.5 MG, DAILY
     Route: 048
     Dates: start: 20200219, end: 20200219
  43. NIFEDIPINE [Concomitant]
     Active Substance: NIFEDIPINE
     Dosage: 12.5 MG, DAILY
     Route: 048
     Dates: start: 20200223, end: 20200223
  44. NIFEDIPINE [Concomitant]
     Active Substance: NIFEDIPINE
     Dosage: 20 MG, DAILY
     Route: 048
     Dates: start: 20200225, end: 20200225
  45. AMLODIPINE [Concomitant]
     Active Substance: AMLODIPINE BESYLATE
     Dosage: 1 DF, 1X/DAY
     Route: 048
     Dates: start: 20200223, end: 20200226
  46. SURGICEL [Concomitant]
     Active Substance: CELLULOSE, OXIDIZED\DEVICE
     Dosage: ATTACHED AS PHYSICIAN INSTRUCTED
     Dates: start: 20200226, end: 20200226
  47. GLYCOSAMINOGLYCANS [Concomitant]
     Active Substance: GLYCOSAMINOGLYCANS
     Dosage: APPLIED AS PHYSICIAN INSTRUCTED
     Dates: start: 20200227, end: 20200227
  48. HYALURONATE SODIUM [Concomitant]
     Active Substance: HYALURONATE SODIUM
     Dosage: WHEN THE EYES DRIED, AS PROPERLY NEEDED
     Dates: start: 20200227, end: 20200227
  49. MYTEAR [BORIC ACID;POTASSIUM CHLORIDE;SODIUM BICARBONATE;SODIUM CHLORI [Concomitant]
     Dosage: 5 DF, DAILY
     Dates: start: 20200228, end: 20200228
  50. ISOTONIC SODIUM CHLORIDE SOLUTION [Concomitant]
     Active Substance: SODIUM CHLORIDE
     Dosage: 284 ML, DAILY
     Route: 041
     Dates: start: 20200217, end: 20200217
  51. ISOTONIC SODIUM CHLORIDE SOLUTION [Concomitant]
     Active Substance: SODIUM CHLORIDE
     Dosage: 200 ML, DAILY
     Route: 041
     Dates: start: 20200218, end: 20200218
  52. ISOTONIC SODIUM CHLORIDE SOLUTION [Concomitant]
     Active Substance: SODIUM CHLORIDE
     Dosage: 292 ML, DAILY
     Route: 041
     Dates: start: 20200219, end: 20200220
  53. ISOTONIC SODIUM CHLORIDE SOLUTION [Concomitant]
     Active Substance: SODIUM CHLORIDE
     Dosage: 200 ML, DAILY
     Route: 041
     Dates: start: 20200221, end: 20200221
  54. ISOTONIC SODIUM CHLORIDE SOLUTION [Concomitant]
     Active Substance: SODIUM CHLORIDE
     Dosage: 150 ML, DAILY
     Route: 041
     Dates: start: 20200222, end: 20200222
  55. ISOTONIC SODIUM CHLORIDE SOLUTION [Concomitant]
     Active Substance: SODIUM CHLORIDE
     Dosage: 100 ML, DAILY
     Route: 041
     Dates: start: 20200223, end: 20200224
  56. ISOTONIC SODIUM CHLORIDE SOLUTION [Concomitant]
     Active Substance: SODIUM CHLORIDE
     Dosage: 50 ML, DAILY
     Route: 041
     Dates: start: 20200225, end: 20200225
  57. ISOTONIC SODIUM CHLORIDE SOLUTION [Concomitant]
     Active Substance: SODIUM CHLORIDE
     Dosage: 149 ML, DAILY
     Route: 041
     Dates: start: 20200226, end: 20200226
  58. ISOTONIC SODIUM CHLORIDE SOLUTION [Concomitant]
     Active Substance: SODIUM CHLORIDE
     Dosage: 99 ML, DAILY
     Route: 041
     Dates: start: 20200227, end: 20200227
  59. ISOTONIC SODIUM CHLORIDE SOLUTION [Concomitant]
     Active Substance: SODIUM CHLORIDE
     Dosage: 100 ML, DAILY
     Route: 041
     Dates: start: 20200228, end: 20200229
  60. ISOTONIC SODIUM CHLORIDE SOLUTION [Concomitant]
     Active Substance: SODIUM CHLORIDE
     Dosage: 50 ML, DAILY
     Route: 041
     Dates: start: 20200301, end: 20200302
  61. ISOTONIC SODIUM CHLORIDE SOLUTION [Concomitant]
     Active Substance: SODIUM CHLORIDE
     Dosage: 300 ML, DAILY
     Route: 042
     Dates: start: 20200217, end: 20200218
  62. ISOTONIC SODIUM CHLORIDE SOLUTION [Concomitant]
     Active Substance: SODIUM CHLORIDE
     Dosage: 100 ML, DAILY
     Route: 042
     Dates: start: 20200219, end: 20200220
  63. ISOTONIC SODIUM CHLORIDE SOLUTION [Concomitant]
     Active Substance: SODIUM CHLORIDE
     Dosage: 98 ML, DAILY
     Route: 042
     Dates: start: 20200225, end: 20200225
  64. ISOTONIC SODIUM CHLORIDE SOLUTION [Concomitant]
     Active Substance: SODIUM CHLORIDE
     Dosage: 186 ML, DAILY
     Route: 042
     Dates: start: 20200226, end: 20200226
  65. CYTARABINE [Concomitant]
     Active Substance: CYTARABINE
     Dosage: 70 MG, DAILY
     Route: 042
     Dates: start: 20200217, end: 20200217
  66. CYTARABINE [Concomitant]
     Active Substance: CYTARABINE
     Dosage: 70 MG, DAILY
     Route: 042
     Dates: start: 20200217, end: 20200219
  67. CYTARABINE [Concomitant]
     Active Substance: CYTARABINE
     Dosage: 70 MG, DAILY
     Route: 042
     Dates: start: 20200223, end: 20200225
  68. ISOTONIC SODIUM CHLORIDE SOLUTION [Concomitant]
     Active Substance: SODIUM CHLORIDE
     Dosage: 480 ML, DAILY
     Route: 042
     Dates: start: 20200217, end: 20200217
  69. ISOTONIC SODIUM CHLORIDE SOLUTION [Concomitant]
     Active Substance: SODIUM CHLORIDE
     Dosage: 240 ML, DAILY
     Route: 042
     Dates: start: 20200218, end: 20200219
  70. ISOTONIC SODIUM CHLORIDE SOLUTION [Concomitant]
     Active Substance: SODIUM CHLORIDE
     Dosage: 240 ML, DAILY
     Route: 042
     Dates: start: 20200223, end: 20200225
  71. YD SOLITA T NO.1 [Concomitant]
     Dosage: 2500 ML, DAILY
     Route: 042
     Dates: start: 20200217, end: 20200217
  72. YD SOLITA T NO.1 [Concomitant]
     Dosage: 500 ML, DAILY
     Route: 042
     Dates: start: 20200218, end: 20200218
  73. YD SOLITA T NO.1 [Concomitant]
     Dosage: 1500 ML, DAILY
     Route: 042
     Dates: start: 20200227, end: 20200229
  74. MIDAZOLAM HYDROCHLORIDE [Concomitant]
     Active Substance: MIDAZOLAM HYDROCHLORIDE
     Dosage: 5 MG, DAILY
     Route: 042
     Dates: start: 20200217, end: 20200217
  75. MIDAZOLAM HYDROCHLORIDE [Concomitant]
     Active Substance: MIDAZOLAM HYDROCHLORIDE
     Dosage: 5 MG, DAILY
     Route: 042
     Dates: start: 20200226, end: 20200227
  76. MIDAZOLAM HYDROCHLORIDE [Concomitant]
     Active Substance: MIDAZOLAM HYDROCHLORIDE
     Dosage: 3 MG, DAILY
     Route: 042
     Dates: start: 20200228, end: 20200302
  77. ISOTONIC SODIUM CHLORIDE SOLUTION [Concomitant]
     Active Substance: SODIUM CHLORIDE
     Dosage: 37.4 ML, DAILY
     Route: 042
     Dates: start: 20200217, end: 20200217
  78. ISOTONIC SODIUM CHLORIDE SOLUTION [Concomitant]
     Active Substance: SODIUM CHLORIDE
     Dosage: 33.4 ML, DAILY
     Route: 042
     Dates: start: 20200218, end: 20200218
  79. ISOTONIC SODIUM CHLORIDE SOLUTION [Concomitant]
     Active Substance: SODIUM CHLORIDE
     Dosage: 51.4 ML, DAILY
     Route: 042
     Dates: start: 20200219, end: 20200220
  80. ISOTONIC SODIUM CHLORIDE SOLUTION [Concomitant]
     Active Substance: SODIUM CHLORIDE
     Dosage: 35.2 ML, DAILY
     Route: 042
     Dates: start: 20200221, end: 20200222
  81. ISOTONIC SODIUM CHLORIDE SOLUTION [Concomitant]
     Active Substance: SODIUM CHLORIDE
     Dosage: 39.6 ML, DAILY
     Route: 042
     Dates: start: 20200223, end: 20200223
  82. ISOTONIC SODIUM CHLORIDE SOLUTION [Concomitant]
     Active Substance: SODIUM CHLORIDE
     Dosage: 52.8 ML, DAILY
     Route: 042
     Dates: start: 20200224, end: 20200225
  83. ISOTONIC SODIUM CHLORIDE SOLUTION [Concomitant]
     Active Substance: SODIUM CHLORIDE
     Dosage: 30.8 ML, DAILY
     Route: 042
     Dates: start: 20200226, end: 20200226
  84. ISOTONIC SODIUM CHLORIDE SOLUTION [Concomitant]
     Active Substance: SODIUM CHLORIDE
     Dosage: 130.8 ML, DAILY
     Route: 042
     Dates: start: 20200227, end: 20200227
  85. ISOTONIC SODIUM CHLORIDE SOLUTION [Concomitant]
     Active Substance: SODIUM CHLORIDE
     Dosage: 150.8 ML, DAILY
     Route: 042
     Dates: start: 20200228, end: 20200301
  86. ISOTONIC SODIUM CHLORIDE SOLUTION [Concomitant]
     Active Substance: SODIUM CHLORIDE
     Dosage: 120.8 ML, DAILY
     Route: 042
     Dates: start: 20200302, end: 20200302
  87. KETALAR [Concomitant]
     Active Substance: KETAMINE HYDROCHLORIDE
     Dosage: 30 MG, DAILY
     Route: 042
     Dates: start: 20200217, end: 20200217
  88. ATROPINE SULFATE [Concomitant]
     Active Substance: ATROPINE SULFATE
     Dosage: 0.2 MG, DAILY
     Route: 042
     Dates: start: 20200217, end: 20200217
  89. GASTER [Concomitant]
     Active Substance: FAMOTIDINE
     Dosage: 18 MG, DAILY
     Route: 042
     Dates: start: 20200217, end: 20200220
  90. SOLU-MEDROL [Concomitant]
     Active Substance: METHYLPREDNISOLONE SODIUM SUCCINATE
     Dosage: 1000 MG, DAILY
     Route: 042
     Dates: start: 20200217, end: 20200218
  91. PRECEDEX [Concomitant]
     Active Substance: DEXMEDETOMIDINE HYDROCHLORIDE
     Dosage: 800 UG, DAILY
     Route: 041
     Dates: start: 20200217, end: 20200217
  92. PRECEDEX [Concomitant]
     Active Substance: DEXMEDETOMIDINE HYDROCHLORIDE
     Dosage: 400 UG, DAILY
     Dates: start: 20200219, end: 20200220
  93. FUROSEMIDE [Concomitant]
     Active Substance: FUROSEMIDE
     Dosage: 30 MG, DAILY
     Dates: start: 20200217, end: 20200217
  94. FUROSEMIDE [Concomitant]
     Active Substance: FUROSEMIDE
     Dosage: 20 MG, DAILY
     Dates: start: 20200218, end: 20200218
  95. FUROSEMIDE [Concomitant]
     Active Substance: FUROSEMIDE
     Dosage: 10 MG, DAILY
     Dates: start: 20200219, end: 20200219
  96. FUROSEMIDE [Concomitant]
     Active Substance: FUROSEMIDE
     Dosage: 10 MG, DAILY
     Dates: start: 20200222, end: 20200222
  97. FUROSEMIDE [Concomitant]
     Active Substance: FUROSEMIDE
     Dosage: 8 MG, DAILY
     Dates: start: 20200217, end: 20200223
  98. FUROSEMIDE [Concomitant]
     Active Substance: FUROSEMIDE
     Dosage: 16 MG, DAILY
     Dates: start: 20200224, end: 20200224
  99. FUROSEMIDE [Concomitant]
     Active Substance: FUROSEMIDE
     Dosage: 26 MG, DAILY
     Dates: start: 20200225, end: 20200225
  100. FUROSEMIDE [Concomitant]
     Active Substance: FUROSEMIDE
     Dosage: 10 MG, DAILY
     Dates: start: 20200226, end: 20200226
  101. FUROSEMIDE [Concomitant]
     Active Substance: FUROSEMIDE
     Dosage: 85 MG, DAILY
     Dates: start: 20200227, end: 20200227
  102. FUROSEMIDE [Concomitant]
     Active Substance: FUROSEMIDE
     Dosage: 45 MG, DAILY
     Dates: start: 20200228, end: 20200229
  103. FUROSEMIDE [Concomitant]
     Active Substance: FUROSEMIDE
     Dosage: 55 MG, DAILY
     Dates: start: 20200301, end: 20200301
  104. FUROSEMIDE [Concomitant]
     Active Substance: FUROSEMIDE
     Dosage: 45 MG, DAILY
     Route: 042
     Dates: start: 20200302, end: 20200302
  105. OMEPRAZOLE [Concomitant]
     Active Substance: OMEPRAZOLE
     Dosage: 17.2 MG, DAILY
     Route: 042
     Dates: start: 20200217, end: 20200302
  106. HEPARIN SODIUM [Concomitant]
     Active Substance: HEPARIN SODIUM
     Dosage: 0.1 MG/L DAILY BY LOCAL CONTINUOUS PUMP INFUSION AT 30ML/H OR MORE
     Route: 013
     Dates: start: 20200217, end: 20200222
  107. HEPARIN SODIUM [Concomitant]
     Active Substance: HEPARIN SODIUM
     Dosage: 5 ML, DAILY
     Route: 042
     Dates: start: 20200217, end: 20200217
  108. HEPARIN SODIUM [Concomitant]
     Active Substance: HEPARIN SODIUM
     Dosage: 5 ML, DAILY
     Dates: start: 20200222, end: 20200223
  109. ELNEOPA NF NO.1 [Concomitant]
     Dosage: 2000 ML, DAILY
     Route: 042
     Dates: start: 20200218, end: 20200220
  110. PREDONINE [Concomitant]
     Active Substance: PREDNISOLONE
     Dosage: 36 MG, DAILY
     Route: 042
     Dates: start: 20200219, end: 20200222
  111. PREDONINE [Concomitant]
     Active Substance: PREDNISOLONE
     Dosage: 48 MG, DAILY
     Route: 042
     Dates: start: 20200223, end: 20200223
  112. PREDONINE [Concomitant]
     Active Substance: PREDNISOLONE
     Dosage: 36 MG, DAILY
     Route: 042
     Dates: start: 20200224, end: 20200302
  113. NICARDIPINE HYDROCHLORIDE [Concomitant]
     Active Substance: NICARDIPINE HYDROCHLORIDE
     Dosage: 25 ML, DAILY
     Route: 042
     Dates: start: 20200219, end: 20200220
  114. SOLITA-T NO.2 [Concomitant]
     Dosage: 500 ML, DAILY
     Route: 042
     Dates: start: 20200219, end: 20200219
  115. SOLITA-T NO.2 [Concomitant]
     Dosage: 1000 ML, DAILY
     Route: 042
     Dates: start: 20200220, end: 20200220
  116. SOLITA-T NO.2 [Concomitant]
     Dosage: 500 ML, DAILY
     Route: 042
     Dates: start: 20200221, end: 20200226
  117. SODIUM CHLORIDE [Concomitant]
     Active Substance: SODIUM CHLORIDE
     Dosage: 5 ML, DAILY
     Route: 042
     Dates: start: 20200219, end: 20200219
  118. SODIUM CHLORIDE [Concomitant]
     Active Substance: SODIUM CHLORIDE
     Dosage: 20 ML, DAILY
     Route: 042
     Dates: start: 20200220, end: 20200220
  119. SODIUM CHLORIDE [Concomitant]
     Active Substance: SODIUM CHLORIDE
     Dosage: 10 ML, DAILY
     Route: 042
     Dates: start: 20200221, end: 20200221
  120. SODIUM CHLORIDE [Concomitant]
     Active Substance: SODIUM CHLORIDE
     Dosage: 20 ML, DAILY
     Route: 042
     Dates: start: 20200222, end: 20200222
  121. SODIUM CHLORIDE [Concomitant]
     Active Substance: SODIUM CHLORIDE
     Dosage: 15 ML, DAILY
     Route: 042
     Dates: start: 20200223, end: 20200223
  122. SODIUM CHLORIDE [Concomitant]
     Active Substance: SODIUM CHLORIDE
     Dosage: 20 ML, DAILY
     Route: 042
     Dates: start: 20200225, end: 20200225
  123. SODIUM CHLORIDE [Concomitant]
     Active Substance: SODIUM CHLORIDE
     Dosage: 30 ML, DAILY
     Route: 042
     Dates: start: 20200226, end: 20200226
  124. SODIUM CHLORIDE [Concomitant]
     Active Substance: SODIUM CHLORIDE
     Dosage: 60 ML, DAILY
     Route: 042
     Dates: start: 20200227, end: 20200302
  125. IRRADIATED PLATELET CONCENTRATE,LEUKOCYTES REDUCED,NISSEKI [Concomitant]
     Dosage: 1 IU, DAILY
     Route: 042
     Dates: start: 20200223, end: 20200224
  126. IRRADIATED PLATELET CONCENTRATE,LEUKOCYTES REDUCED,NISSEKI [Concomitant]
     Dosage: 2 IU, DAILY
     Route: 042
     Dates: start: 20200225, end: 20200225
  127. IRRADIATED PLATELET CONCENTRATE,LEUKOCYTES REDUCED,NISSEKI [Concomitant]
     Dosage: 3 IU, DAILY
     Route: 042
     Dates: start: 20200226, end: 20200226
  128. IRRADIATED PLATELET CONCENTRATE,LEUKOCYTES REDUCED,NISSEKI [Concomitant]
     Dosage: 2 IU, DAILY
     Route: 042
     Dates: start: 20200227, end: 20200301
  129. AMPICILLIN SODIUM [Concomitant]
     Active Substance: AMPICILLIN SODIUM
     Dosage: 0.8 G, DAILY
     Route: 042
     Dates: start: 20200223, end: 20200223
  130. AMPICILLIN SODIUM [Concomitant]
     Active Substance: AMPICILLIN SODIUM
     Dosage: 3.2 G, DAILY
     Route: 042
     Dates: start: 20200224, end: 20200225
  131. HUMAN RED BLOOD CELL [Concomitant]
     Active Substance: HUMAN RED BLOOD CELL
     Dosage: 1 IU, DAILY
     Route: 042
     Dates: start: 20200225, end: 20200225
  132. HUMAN RED BLOOD CELL [Concomitant]
     Active Substance: HUMAN RED BLOOD CELL
     Dosage: 2 IU, DAILY
     Route: 042
     Dates: start: 20200226, end: 20200226
  133. HUMAN RED BLOOD CELL [Concomitant]
     Active Substance: HUMAN RED BLOOD CELL
     Dosage: 1 IU, DAILY
     Route: 042
     Dates: start: 20200227, end: 20200227
  134. MORPHINE HYDROCHLORIDE [Concomitant]
     Active Substance: MORPHINE HYDROCHLORIDE
     Dosage: 20 MG, DAILY
     Route: 042
     Dates: start: 20200225, end: 20200225
  135. MORPHINE HYDROCHLORIDE [Concomitant]
     Active Substance: MORPHINE HYDROCHLORIDE
     Dosage: 140 MG, DAILY
     Route: 042
     Dates: start: 20200226, end: 20200226
  136. PRIMPERAN [Concomitant]
     Active Substance: METOCLOPRAMIDE HYDROCHLORIDE
     Dosage: 5 MG, DAILY
     Route: 042
     Dates: start: 20200226, end: 20200226
  137. CEFEPIME HYDROCHLORIDE [Concomitant]
     Active Substance: CEFEPIME HYDROCHLORIDE
     Dosage: 1 G, DAILY
     Route: 042
     Dates: start: 20200226, end: 20200226
  138. CEFEPIME HYDROCHLORIDE [Concomitant]
     Active Substance: CEFEPIME HYDROCHLORIDE
     Dosage: 3 G, DAILY
     Route: 042
     Dates: start: 20200227, end: 20200229
  139. CEFEPIME HYDROCHLORIDE [Concomitant]
     Active Substance: CEFEPIME HYDROCHLORIDE
     Dosage: 6 G, DAILY
     Route: 042
     Dates: start: 20200301, end: 20200301
  140. CEFEPIME HYDROCHLORIDE [Concomitant]
     Active Substance: CEFEPIME HYDROCHLORIDE
     Dosage: 3 G, DAILY
     Route: 042
     Dates: start: 20200302, end: 20200302
  141. CALCIUM GLUCONATE [Concomitant]
     Active Substance: CALCIUM GLUCONATE
     Dosage: 8 ML, DAILY
     Route: 042
     Dates: start: 20200226, end: 20200226
  142. WATER FOR INJECTION [Concomitant]
     Active Substance: WATER
     Dosage: 8 ML, DAILY
     Dates: start: 20200226, end: 20200226
  143. RASBURICASE [Concomitant]
     Active Substance: RASBURICASE
     Dosage: 3 MG, DAILY
     Route: 042
     Dates: start: 20200227, end: 20200302
  144. DEFITELIO [Concomitant]
     Active Substance: DEFIBROTIDE SODIUM
     Dosage: 336 MG, DAILY
     Route: 042
     Dates: start: 20200227, end: 20200227
  145. DEFITELIO [Concomitant]
     Active Substance: DEFIBROTIDE SODIUM
     Dosage: 448 MG, DAILY
     Route: 042
     Dates: start: 20200228, end: 20200302
  146. DEXTROSE [Concomitant]
     Active Substance: DEXTROSE
     Dosage: 500 ML, DAILY
     Route: 042
     Dates: start: 20200229, end: 20200302
  147. DEXTROSE [Concomitant]
     Active Substance: DEXTROSE
     Dosage: 50 ML, DAILY
     Route: 042
     Dates: start: 20200301, end: 20200302
  148. DEXTROSE [Concomitant]
     Active Substance: DEXTROSE
     Dosage: 30 ML, DAILY
     Route: 042
     Dates: start: 20200301, end: 20200302

REACTIONS (4)
  - Neoplasm progression [Fatal]
  - Venoocclusive liver disease [Recovering/Resolving]
  - Hepatic function abnormal [Recovering/Resolving]
  - Abdominal distension [Recovering/Resolving]

NARRATIVE: CASE EVENT DATE: 20191114
